FAERS Safety Report 19306298 (Version 4)
Quarter: 2021Q3

REPORT INFORMATION
  Report Type: Spontaneous
  Country: JP (occurrence: JP)
  Receive Date: 20210526
  Receipt Date: 20210802
  Transmission Date: 20211014
  Serious: Yes (Other)
  Sender: FDA-Public Use
  Company Number: NVSJ2021JP007881

PATIENT
  Age: 72 Year
  Sex: Female

DRUGS (2)
  1. DANAZOL. [Concomitant]
     Active Substance: DANAZOL
     Indication: PRODUCT USED FOR UNKNOWN INDICATION
     Route: 065
  2. REVOLADE TAB [Suspect]
     Active Substance: ELTROMBOPAG OLAMINE
     Indication: APLASTIC ANAEMIA
     Dosage: 100 MG
     Route: 048
     Dates: start: 20200915

REACTIONS (5)
  - Granulocytopenia [Not Recovered/Not Resolved]
  - Myelodysplastic syndrome transformation [Not Recovered/Not Resolved]
  - Blast cell count increased [Unknown]
  - Thrombocytopenia [Not Recovered/Not Resolved]
  - Anaemia [Unknown]

NARRATIVE: CASE EVENT DATE: 202103
